FAERS Safety Report 15402864 (Version 1)
Quarter: 2018Q3

REPORT INFORMATION
  Report Type: Spontaneous
  Country: US (occurrence: US)
  Receive Date: 20180919
  Receipt Date: 20180919
  Transmission Date: 20181010
  Serious: Yes (Other)
  Sender: FDA-Public Use
  Company Number: US-DSJP-DSU-2017-108201

PATIENT

DRUGS (1)
  1. BENICAR HCT [Suspect]
     Active Substance: HYDROCHLOROTHIAZIDE\OLMESARTAN MEDOXOMIL
     Indication: HYPERTENSION
     Dosage: 20?12.5 MG, QD
     Route: 048
     Dates: start: 2007, end: 2015

REACTIONS (6)
  - Rectal haemorrhage [Unknown]
  - Oesophagitis ulcerative [Not Recovered/Not Resolved]
  - Large intestine polyp [Unknown]
  - Sprue-like enteropathy [Not Recovered/Not Resolved]
  - Barrett^s oesophagus [Unknown]
  - Hiatus hernia [Unknown]

NARRATIVE: CASE EVENT DATE: 20070515
